FAERS Safety Report 5359768-2 (Version None)
Quarter: 2007Q2

REPORT INFORMATION
  Report Type: 
  Country: None (occurrence: None)
  Receive Date: 20070616
  Receipt Date: 20070605
  Transmission Date: 20071010
  Serious: Yes (Other)
  Sender: FDA-Public Use
  Company Number: US-PFIZER INC-2007047930

PATIENT
  Sex: Female
  Weight: 93.181 kg

DRUGS (2)
  1. LIPITOR [Suspect]
     Indication: BLOOD CHOLESTEROL INCREASED
     Dates: start: 20050801, end: 20060501
  2. LEVOTHYROXINE SODIUM [Concomitant]

REACTIONS (4)
  - ABASIA [None]
  - ASTHENIA [None]
  - ILL-DEFINED DISORDER [None]
  - MYALGIA [None]
